FAERS Safety Report 24178505 (Version 1)
Quarter: 2024Q3

REPORT INFORMATION
  Report Type: Spontaneous
  Country: US (occurrence: US)
  Receive Date: 20240806
  Receipt Date: 20240806
  Transmission Date: 20241017
  Serious: No
  Sender: ALMUS
  Company Number: US-ALMIRALL-US-2024-1785

PATIENT
  Sex: Female

DRUGS (1)
  1. KLISYRI [Suspect]
     Active Substance: TIRBANIBULIN
     Dates: start: 2024, end: 2024

REACTIONS (2)
  - Application site scab [Unknown]
  - Application site erythema [Unknown]

NARRATIVE: CASE EVENT DATE: 20240101
